FAERS Safety Report 21500039 (Version 2)
Quarter: 2022Q4

REPORT INFORMATION
  Report Type: Report from Study
  Country: CN (occurrence: CN)
  Receive Date: 20221024
  Receipt Date: 20221031
  Transmission Date: 20230112
  Serious: Yes (Hospitalization)
  Sender: FDA-Public Use
  Company Number: CN-PFM-2022-07551

PATIENT
  Sex: Female
  Weight: 36 kg

DRUGS (35)
  1. ENCORAFENIB [Suspect]
     Active Substance: ENCORAFENIB
     Indication: BRAF V600E mutation positive
     Dosage: 300 MG
     Route: 065
     Dates: start: 20220915
  2. ENCORAFENIB [Suspect]
     Active Substance: ENCORAFENIB
     Indication: Colorectal cancer metastatic
     Dosage: 300 MG
     Route: 065
     Dates: start: 20220921
  3. ENCORAFENIB [Suspect]
     Active Substance: ENCORAFENIB
     Dosage: 300 MG
     Route: 065
     Dates: start: 20220929
  4. ENCORAFENIB [Suspect]
     Active Substance: ENCORAFENIB
     Dosage: 300 MG
     Route: 065
     Dates: start: 20221011, end: 20221014
  5. ENCORAFENIB [Suspect]
     Active Substance: ENCORAFENIB
     Dosage: 300 MG, QD (1/DAY)
     Route: 048
     Dates: start: 20221017
  6. CETUXIMAB [Suspect]
     Active Substance: CETUXIMAB
     Indication: BRAF V600E mutation positive
     Dosage: 560 MG
     Route: 065
     Dates: start: 20220915
  7. CETUXIMAB [Suspect]
     Active Substance: CETUXIMAB
     Dosage: 350 MG
     Route: 065
     Dates: start: 20220921
  8. CETUXIMAB [Suspect]
     Active Substance: CETUXIMAB
     Dosage: 350 MG
     Route: 065
     Dates: start: 20220929
  9. CETUXIMAB [Suspect]
     Active Substance: CETUXIMAB
     Dosage: 325 MG
     Route: 065
     Dates: start: 20221011, end: 20221012
  10. CETUXIMAB [Suspect]
     Active Substance: CETUXIMAB
     Dosage: 325 MG, WEEKLY
     Route: 042
     Dates: start: 20221019
  11. RACEANISODAMINE [Concomitant]
     Active Substance: RACEANISODAMINE
     Indication: Pain
     Dosage: UNK
     Route: 065
     Dates: start: 20220922, end: 20220930
  12. OXYCODONE HYDROCHLORIDE [Concomitant]
     Active Substance: OXYCODONE HYDROCHLORIDE
     Indication: Pain
     Dosage: UNK
     Route: 065
     Dates: start: 20220922, end: 20221013
  13. ONDANSETRON HYDROCHLORIDE [Concomitant]
     Active Substance: ONDANSETRON HYDROCHLORIDE
     Indication: Vomiting
     Dosage: UNK
     Route: 065
     Dates: start: 20220929, end: 20221002
  14. MEGESTROL ACETATE [Concomitant]
     Active Substance: MEGESTROL ACETATE
     Dosage: UNK
     Route: 065
     Dates: start: 20220929, end: 20221002
  15. COMPOUND AMINO ACID INJECTION (14AA) [Concomitant]
     Indication: Nutritional supplementation
     Dosage: UNK
     Route: 065
     Dates: start: 20220929, end: 20220929
  16. COMPOUND AMINO ACID INJECTION (14AA) [Concomitant]
     Dosage: UNK
     Route: 065
     Dates: start: 20221012, end: 20221012
  17. COMPOUND AMINO ACID INJECTION (14AA) [Concomitant]
     Dosage: UNK
     Route: 065
     Dates: start: 20221013, end: 20221019
  18. COMPOUND AMINO ACID INJECTION (14AA) [Concomitant]
     Dosage: 250 ML, ONCE
     Route: 065
     Dates: start: 20221020, end: 20221020
  19. APREPITANT [Concomitant]
     Active Substance: APREPITANT
     Indication: Vomiting
     Dosage: UNK
     Route: 065
     Dates: start: 20221011, end: 20221013
  20. POTASSIUM CHLORIDE [Concomitant]
     Active Substance: POTASSIUM CHLORIDE
     Indication: Nutritional supplementation
     Dosage: UNK
     Route: 065
     Dates: start: 20221012, end: 20221012
  21. POTASSIUM CHLORIDE [Concomitant]
     Active Substance: POTASSIUM CHLORIDE
     Dosage: 20 ML, ONCE
     Route: 042
     Dates: start: 20221013, end: 20221019
  22. VITAMIN B6 [Concomitant]
     Active Substance: PYRIDOXINE HYDROCHLORIDE
     Indication: Nutritional supplementation
     Dosage: 20 ML, ONCE
     Route: 042
     Dates: start: 20221013, end: 20221019
  23. VITAMIN C [Concomitant]
     Active Substance: ASCORBIC ACID
     Indication: Nutritional supplementation
     Dosage: 50 ML, ONCE
     Route: 042
     Dates: start: 20221013, end: 20221019
  24. DEXTROSE [Concomitant]
     Active Substance: DEXTROSE
     Indication: Nutritional supplementation
     Dosage: 300 ML, ONCE (GLUCOSE, INJECTION, 5 PERCENT)
     Route: 042
     Dates: start: 20221013, end: 20221019
  25. DEXTROSE [Concomitant]
     Active Substance: DEXTROSE
     Dosage: 2500 ML, ONCE(GLUCOSE, INJECTION, 10 PERCENT)
     Route: 042
     Dates: start: 20221013, end: 20221019
  26. SODIUM BICARBONATE RINGER^S [Concomitant]
     Indication: Nutritional supplementation
     Dosage: 1000 ML, ONCE
     Dates: start: 20221013, end: 20221019
  27. CALCIUM GLUCONATE [Concomitant]
     Active Substance: CALCIUM GLUCONATE
     Indication: Nutritional supplementation
     Dosage: 20 ML, ONCE
     Route: 042
     Dates: start: 20221013, end: 20221019
  28. METRONIDAZOLE\SODIUM CHLORIDE [Concomitant]
     Active Substance: METRONIDAZOLE\SODIUM CHLORIDE
     Indication: Inflammation
     Dosage: 1300 ML, ONCE
     Route: 065
     Dates: start: 20221013, end: 20221019
  29. METRONIDAZOLE\SODIUM CHLORIDE [Concomitant]
     Active Substance: METRONIDAZOLE\SODIUM CHLORIDE
     Indication: Infection prophylaxis
  30. ROXATIDINE ACETATE HYDROCHLORIDE [Concomitant]
     Active Substance: ROXATIDINE ACETATE HYDROCHLORIDE
     Indication: Prophylaxis against gastrointestinal ulcer
     Dosage: 525 MG, ONCE
     Route: 065
     Dates: start: 20221013, end: 20221019
  31. CEFTAZIDIME [Concomitant]
     Active Substance: CEFTAZIDIME
     Indication: Infection prophylaxis
     Dosage: 27 G, ONCE
     Route: 065
     Dates: start: 20221013, end: 20221019
  32. ASPIRIN DL-LYSINE [Concomitant]
     Active Substance: ASPIRIN DL-LYSINE
     Indication: Pain
     Dosage: 10.5 G, ONCE
     Route: 065
     Dates: start: 20221013, end: 20221019
  33. LIDOCAINE HYDROCHLORIDE [Concomitant]
     Active Substance: LIDOCAINE HYDROCHLORIDE
     Indication: Pain
     Dosage: 5 ML, ONCE
     Route: 065
     Dates: start: 20221013, end: 20221019
  34. DEXTROSE\SODIUM CHLORIDE [Concomitant]
     Active Substance: DEXTROSE\SODIUM CHLORIDE
     Indication: Muscle spasms
     Dosage: 5000 ML, ONCE
     Route: 065
     Dates: start: 20221013, end: 20221019
  35. PHLOROGLUCINOL [Concomitant]
     Active Substance: PHLOROGLUCINOL
     Indication: Muscle spasms
     Dosage: 24 ML, ONCE
     Route: 065
     Dates: start: 20221013, end: 20221019

REACTIONS (2)
  - Intestinal obstruction [Recovering/Resolving]
  - Intestinal obstruction [Recovering/Resolving]

NARRATIVE: CASE EVENT DATE: 20221013
